FAERS Safety Report 4711142-5 (Version None)
Quarter: 2005Q3

REPORT INFORMATION
  Report Type: 
  Country: None (occurrence: None)
  Receive Date: 20050708
  Receipt Date: 20050630
  Transmission Date: 20060218
  Serious: Yes (Other)
  Sender: FDA-Public Use
  Company Number: HQWYE953201JUL05

PATIENT
  Age: 60 Year
  Sex: Female

DRUGS (1)
  1. MINOMYCIN                 (MINOCYLCINE) [Suspect]
     Indication: PROPHYLAXIS

REACTIONS (2)
  - HYPOTENSION [None]
  - TOXIC EPIDERMAL NECROLYSIS [None]
